FAERS Safety Report 9506078 (Version 1)
Quarter: 2013Q1

REPORT INFORMATION
  Report Type: Spontaneous
  Country: US (occurrence: None)
  Receive Date: 20130301
  Receipt Date: 20130301
  Transmission Date: 20140127
  Serious: Yes (Other)
  Sender: FDA-Public Use
  Company Number: RB-44180-2012

PATIENT
  Age: 30 Year
  Sex: Female

DRUGS (4)
  1. SUBOXONE [Suspect]
     Indication: DRUG DEPENDENCE
     Dosage: TAPERED DOSE
     Route: 060
     Dates: start: 200907, end: 20120801
  2. NEURONTIN [Concomitant]
  3. ZOLOFT [Concomitant]
  4. CONTRACEPTIVES [Concomitant]

REACTIONS (5)
  - Drug withdrawal syndrome [None]
  - Insomnia [None]
  - Decreased appetite [None]
  - Tremor [None]
  - Convulsion [None]
